FAERS Safety Report 4356986-7 (Version None)
Quarter: 2004Q2

REPORT INFORMATION
  Report Type: 
  Country: None (occurrence: None)
  Receive Date: 20040507
  Receipt Date: 20040416
  Transmission Date: 20050107
  Serious: Yes (Other)
  Sender: FDA-Public Use
  Company Number: USA040465212

PATIENT
  Sex: Male

DRUGS (5)
  1. CIALIS [Suspect]
     Indication: ERECTILE DYSFUNCTION
     Dosage: 10 MG
     Dates: start: 20040314
  2. ZOCOR [Concomitant]
  3. PINDOLOL [Concomitant]
  4. DILANTIN [Concomitant]
  5. LEVETIRACETAM [Concomitant]

REACTIONS (1)
  - CONVULSION [None]
